FAERS Safety Report 19050483 (Version 1)
Quarter: 2021Q1

REPORT INFORMATION
  Report Type: Spontaneous
  Country: GB (occurrence: GB)
  Receive Date: 20210324
  Receipt Date: 20210324
  Transmission Date: 20210420
  Serious: Yes (Life-Threatening)
  Sender: FDA-Public Use
  Company Number: GB-JNJFOC-20210334242

PATIENT
  Age: 17 Year
  Sex: Male
  Weight: 51.25 kg

DRUGS (1)
  1. CONCERTA [Suspect]
     Active Substance: METHYLPHENIDATE HYDROCHLORIDE
     Indication: ATTENTION DEFICIT HYPERACTIVITY DISORDER
     Route: 048
     Dates: start: 20210207, end: 20210306

REACTIONS (3)
  - Intentional self-injury [Recovered/Resolved with Sequelae]
  - Suicidal behaviour [Recovered/Resolved with Sequelae]
  - Anger [Recovered/Resolved with Sequelae]
